FAERS Safety Report 13119335 (Version 1)
Quarter: 2017Q1

REPORT INFORMATION
  Report Type: Spontaneous
  Country: US (occurrence: US)
  Receive Date: 20170116
  Receipt Date: 20170116
  Transmission Date: 20170428
  Serious: Yes (Other)
  Sender: FDA-Public Use
  Company Number: US-ALLERGAN-1701449US

PATIENT
  Age: 17 Year
  Sex: Female
  Weight: 43.54 kg

DRUGS (1)
  1. BOTULINUM TOXIN TYPE A UNK [Suspect]
     Active Substance: BOTULINUM TOXIN TYPE A
     Indication: OESOPHAGEAL ACHALASIA
     Dosage: 25 UNITS, SINGLE

REACTIONS (3)
  - Pre-eclampsia [Recovered/Resolved]
  - Off label use [Unknown]
  - Pregnancy [Unknown]
